FAERS Safety Report 9370520 (Version 2)
Quarter: 2013Q3

REPORT INFORMATION
  Report Type: Spontaneous
  Country: JP (occurrence: JP)
  Receive Date: 20130626
  Receipt Date: 20130715
  Transmission Date: 20140515
  Serious: Yes (Other)
  Sender: FDA-Public Use
  Company Number: JP-GLAXOSMITHKLINE-B0901709A

PATIENT
  Age: 8 Decade
  Sex: Male

DRUGS (2)
  1. LAMICTAL [Suspect]
     Indication: TEMPORAL LOBE EPILEPSY
     Dosage: 100MG TWICE PER DAY
     Route: 048
     Dates: start: 201306, end: 20130613
  2. TEGRETOL [Concomitant]
     Route: 048

REACTIONS (5)
  - Stevens-Johnson syndrome [Unknown]
  - Rash [Not Recovered/Not Resolved]
  - Rash generalised [Not Recovered/Not Resolved]
  - Restlessness [Unknown]
  - Pyrexia [Unknown]
